FAERS Safety Report 16818936 (Version 1)
Quarter: 2019Q3

REPORT INFORMATION
  Report Type: Spontaneous
  Country: US (occurrence: US)
  Receive Date: 20190917
  Receipt Date: 20190917
  Transmission Date: 20191005
  Serious: Yes (Death, Life-Threatening, Hospitalization)
  Sender: FDA-Public Use
  Company Number: US-TEVA-2019-US-1108525

PATIENT
  Age: 18 Year
  Sex: Male

DRUGS (4)
  1. CLOZAPINE. [Suspect]
     Active Substance: CLOZAPINE
     Indication: SCHIZOPHRENIA
     Route: 065
  2. COLCHICINE. [Suspect]
     Active Substance: COLCHICINE
     Indication: INTENTIONAL OVERDOSE
     Route: 048
  3. LORAZEPAM. [Suspect]
     Active Substance: LORAZEPAM
     Indication: INTENTIONAL OVERDOSE
     Route: 065
  4. ARIPIPRAZOLE. [Suspect]
     Active Substance: ARIPIPRAZOLE
     Indication: INTENTIONAL OVERDOSE
     Route: 065

REACTIONS (10)
  - Cardiac arrest [Fatal]
  - Myocarditis [Unknown]
  - Depressed level of consciousness [Unknown]
  - Vomiting [Unknown]
  - Intentional overdose [Fatal]
  - Haemodynamic instability [Unknown]
  - Cardiac dysfunction [Unknown]
  - Diarrhoea [Unknown]
  - Pericarditis [Unknown]
  - Somnolence [Unknown]
